FAERS Safety Report 25601088 (Version 1)
Quarter: 2025Q3

REPORT INFORMATION
  Report Type: Spontaneous
  Country: US (occurrence: US)
  Receive Date: 20250724
  Receipt Date: 20250724
  Transmission Date: 20251021
  Serious: Yes (Hospitalization)
  Sender: SCILEX PHARMACEUTICALS INC.
  Company Number: US-SCILEX PHARMACEUTICALS INC.-US-SOR-25-00167

PATIENT
  Age: 89 Year
  Sex: Female

DRUGS (1)
  1. COLCHICINE [Suspect]
     Active Substance: COLCHICINE
     Indication: Pericardial effusion
     Dosage: 0.3 MILLIGRAM, BID
     Route: 065

REACTIONS (2)
  - Eosinophilic pleural effusion [Unknown]
  - Off label use [Unknown]
